FAERS Safety Report 7581740-2 (Version None)
Quarter: 2011Q2

REPORT INFORMATION
  Report Type: 
  Country: None (occurrence: None)
  Receive Date: 20110629
  Receipt Date: 20110614
  Transmission Date: 20111010
  Serious: Yes (Life-Threatening, Hospitalization, Disabling, Other)
  Sender: FDA-Public Use
  Company Number: US-BAYER-2011-054793

PATIENT
  Age: 78 Year
  Sex: Male
  Weight: 102.2 kg

DRUGS (30)
  1. ALLEGRA [Concomitant]
  2. KLOR-CON [Concomitant]
  3. METOPROLOL TARTRATE [Concomitant]
  4. NITROGLYCERIN [Concomitant]
  5. NASONEX [Concomitant]
  6. GARLIC [Concomitant]
  7. DIPHENHYDRAMINE HCL [Concomitant]
  8. NEBIVOLOL HCL [Concomitant]
  9. GLIPIZIDE [Concomitant]
  10. OLOPATADINE [Concomitant]
  11. ACETYLSALICYLIC ACID SRT [Suspect]
     Indication: ACUTE CORONARY SYNDROME
  12. ALFUZOSIN HCL [Concomitant]
  13. INSULIN ASPART [Concomitant]
  14. ZOFRAN [Concomitant]
  15. CLOPIDOGREL [Interacting]
     Indication: ACUTE CORONARY SYNDROME
  16. SIMVASTATIN [Concomitant]
  17. UROXATRAL [Concomitant]
  18. NITROGLYCERIN [Concomitant]
  19. ENOXAPARIN [Concomitant]
  20. PROVENTIL [Concomitant]
  21. MORPHINE [Concomitant]
  22. PROVENTIL [Concomitant]
  23. RIVAROXABAN [Interacting]
     Indication: ACUTE CORONARY SYNDROME
     Dosage: DOSAGE FORM: TABLET
     Route: 048
     Dates: start: 20090901, end: 20110503
  24. LISINOPRIL [Concomitant]
  25. CRESTOR [Concomitant]
  26. FLUTICASONE PROPIONATE [Concomitant]
  27. LASIX [Concomitant]
  28. INTEGRILIN [Concomitant]
  29. PROCET [HYDROCODONE,PARACETAMOL] [Concomitant]
  30. ACETYLCYSTEINE [Concomitant]

REACTIONS (1)
  - HAEMORRHAGE INTRACRANIAL [None]
